FAERS Safety Report 17811583 (Version 1)
Quarter: 2020Q2

REPORT INFORMATION
  Report Type: Spontaneous
  Country: US (occurrence: US)
  Receive Date: 20200520
  Receipt Date: 20200520
  Transmission Date: 20200714
  Serious: Yes (Other)
  Sender: FDA-Public Use
  Company Number: None

PATIENT
  Age: 55 Year
  Sex: Female
  Weight: 119 kg

DRUGS (5)
  1. EQUASHIELD FEMALE LUER LOCK CONNECTOR - SWIVEL (FC-I S) [Suspect]
     Active Substance: DEVICE
  2. HOME-PUMP C-SERIES 270ML/5ML/HR [Concomitant]
  3. BAXTER ONE-LINK LV CONNECTOR NEEDLE-FREE [Concomitant]
  4. FLUOROURACIL. [Suspect]
     Active Substance: FLUOROURACIL
  5. EQUASHIELD LUER LOCK ADAPTOR [Concomitant]

REACTIONS (2)
  - Device connection issue [None]
  - Infusion site haemorrhage [None]

NARRATIVE: CASE EVENT DATE: 20200518
